FAERS Safety Report 4675639-9 (Version None)
Quarter: 2005Q2

REPORT INFORMATION
  Report Type: 
  Country: None (occurrence: None)
  Receive Date: 20050525
  Receipt Date: 20050517
  Transmission Date: 20051028
  Serious: Yes (Other)
  Sender: FDA-Public Use
  Company Number: 167-20785-05050308

PATIENT
  Age: 56 Year
  Sex: Male

DRUGS (1)
  1. THALIDOMIDE                                         (THALIDOMIDE) [Suspect]
     Dosage: 100 MG, DAILY, ORAL
     Route: 048

REACTIONS (1)
  - NECROSIS [None]
